FAERS Safety Report 23519037 (Version 3)
Quarter: 2024Q4

REPORT INFORMATION
  Report Type: Spontaneous
  Country: US (occurrence: US)
  Receive Date: 20240213
  Receipt Date: 20241120
  Transmission Date: 20250115
  Serious: Yes (Other)
  Sender: ABBVIE
  Company Number: US-ABBVIE-5634857

PATIENT
  Age: 64 Year
  Sex: Male
  Weight: 76 kg

DRUGS (33)
  1. VRAYLAR [Interacting]
     Active Substance: CARIPRAZINE
     Indication: Bipolar disorder
     Dosage: FROM STRENGTH WAS 1.5MG
     Route: 048
  2. KLONOPIN [Concomitant]
     Active Substance: CLONAZEPAM
     Indication: Product used for unknown indication
  3. OPSUMIT [Concomitant]
     Active Substance: MACITENTAN
     Indication: Product used for unknown indication
  4. CLOBETASOL PROPIONATE [Concomitant]
     Active Substance: CLOBETASOL PROPIONATE
     Indication: Product used for unknown indication
  5. WELLBUTRIN XL [Concomitant]
     Active Substance: BUPROPION HYDROCHLORIDE
     Indication: Product used for unknown indication
  6. ORENITRAM [Interacting]
     Active Substance: TREPROSTINIL
     Indication: Pulmonary arterial hypertension
     Dosage: TIME INTERVAL: 0.33333333 DAYS
     Route: 048
     Dates: start: 2023, end: 202312
  7. ORENITRAM [Interacting]
     Active Substance: TREPROSTINIL
     Indication: Pulmonary arterial hypertension
     Dosage: TID
     Route: 048
     Dates: start: 20240312, end: 20240312
  8. ORENITRAM [Interacting]
     Active Substance: TREPROSTINIL
     Indication: Pulmonary arterial hypertension
     Dosage: LAST ADMIN DATE WAS 2023
     Route: 048
     Dates: start: 20230905
  9. ORENITRAM [Interacting]
     Active Substance: TREPROSTINIL
     Indication: Pulmonary arterial hypertension
     Dosage: LAST ADMIN DATE: OCT 2023
     Route: 048
     Dates: start: 20231009
  10. ORENITRAM [Interacting]
     Active Substance: TREPROSTINIL
     Indication: Pulmonary arterial hypertension
     Dosage: ONE, TIME INTERVAL: 0.33333333 DAYS, LAST ADMIN DATE WAS 2023
     Route: 048
     Dates: start: 202309, end: 202309
  11. ORENITRAM [Interacting]
     Active Substance: TREPROSTINIL
     Indication: Pulmonary arterial hypertension
     Dosage: TIME INTERVAL: 0.33333333 DAYS, EVERY 8 HOURS
     Route: 048
     Dates: start: 2024
  12. ORENITRAM [Interacting]
     Active Substance: TREPROSTINIL
     Indication: Pulmonary arterial hypertension
     Dosage: LAST ADMIN DATE WAS 2023
     Route: 048
     Dates: start: 202310
  13. ORENITRAM [Interacting]
     Active Substance: TREPROSTINIL
     Indication: Pulmonary arterial hypertension
     Dosage: TIME INTERVAL: 0.33333333 DAYS
     Route: 048
     Dates: start: 20231213
  14. ORENITRAM [Interacting]
     Active Substance: TREPROSTINIL
     Indication: Pulmonary arterial hypertension
     Dosage: TIME INTERVAL: 0.33333333 DAYS
     Route: 048
     Dates: start: 202309, end: 202309
  15. ORENITRAM [Interacting]
     Active Substance: TREPROSTINIL
     Indication: Pulmonary arterial hypertension
     Dosage: LAST ADMIN DATE: 2024
     Route: 048
     Dates: start: 20240312
  16. ORENITRAM [Interacting]
     Active Substance: TREPROSTINIL
     Indication: Pulmonary arterial hypertension
     Dosage: TIME INTERVAL: 0.33333333 DAYS, EVERY 8 HOURS?LAST ADMIN DATE 2024
     Route: 048
     Dates: start: 2024
  17. ORENITRAM [Interacting]
     Active Substance: TREPROSTINIL
     Indication: Pulmonary arterial hypertension
     Dosage: TIME INTERVAL: 0.33333333 DAYS, EVERY 8 HOURS?LAST ADMIN DATE 2024
     Route: 048
     Dates: start: 2024
  18. ORENITRAM [Interacting]
     Active Substance: TREPROSTINIL
     Indication: Pulmonary arterial hypertension
     Dosage: TIME INTERVAL: 0.33333333 DAYS
     Route: 048
     Dates: start: 2024, end: 2024
  19. ORENITRAM [Interacting]
     Active Substance: TREPROSTINIL
     Indication: Pulmonary arterial hypertension
     Dosage: TIME INTERVAL: 0.33333333 DAYS
     Route: 048
     Dates: start: 2024, end: 20240709
  20. ORENITRAM [Interacting]
     Active Substance: TREPROSTINIL
     Indication: Pulmonary arterial hypertension
     Dosage: TIME INTERVAL: 0.33333333 DAYS
     Route: 048
     Dates: start: 20240709
  21. NITROSTAT [Concomitant]
     Active Substance: NITROGLYCERIN
     Indication: Product used for unknown indication
     Route: 060
  22. ADDERALL [Concomitant]
     Active Substance: AMPHETAMINE ASPARTATE\AMPHETAMINE SULFATE\DEXTROAMPHETAMINE SACCHARATE\DEXTROAMPHETAMINE SULFATE
     Indication: Product used for unknown indication
  23. ASPIRIN [Concomitant]
     Active Substance: ASPIRIN
     Indication: Product used for unknown indication
  24. ALBUTEROL SULFATE [Concomitant]
     Active Substance: ALBUTEROL SULFATE
     Indication: Product used for unknown indication
  25. TRIUMEQ [Concomitant]
     Active Substance: ABACAVIR SULFATE\DOLUTEGRAVIR SODIUM\LAMIVUDINE
     Indication: Product used for unknown indication
  26. MINERALS\VITAMINS [Concomitant]
     Active Substance: MINERALS\VITAMINS
     Indication: Product used for unknown indication
  27. AZELASTINE HYDROCHLORIDE\FLUTICASONE PROPIONATE [Concomitant]
     Active Substance: AZELASTINE HYDROCHLORIDE\FLUTICASONE PROPIONATE
     Indication: Product used for unknown indication
  28. ABILIFY [Concomitant]
     Active Substance: ARIPIPRAZOLE
     Indication: Product used for unknown indication
  29. BIOTIN [Concomitant]
     Active Substance: BIOTIN
     Indication: Product used for unknown indication
  30. AMBRISENTAN [Concomitant]
     Active Substance: AMBRISENTAN
     Indication: Product used for unknown indication
  31. LUNESTA [Concomitant]
     Active Substance: ESZOPICLONE
     Indication: Product used for unknown indication
  32. ROSUVASTATIN CALCIUM [Concomitant]
     Active Substance: ROSUVASTATIN CALCIUM
     Indication: Product used for unknown indication
  33. UPTRAVI [Suspect]
     Active Substance: SELEXIPAG
     Indication: Product used for unknown indication
     Route: 065

REACTIONS (41)
  - Abnormal dreams [Unknown]
  - Drug interaction [Not Recovered/Not Resolved]
  - Dizziness [Unknown]
  - Bipolar disorder [Recovering/Resolving]
  - Rash [Unknown]
  - Nervousness [Recovering/Resolving]
  - Chest pain [Unknown]
  - Feeling of body temperature change [Recovered/Resolved]
  - Diarrhoea [Not Recovered/Not Resolved]
  - Palpitations [Unknown]
  - Poor quality sleep [Unknown]
  - Nausea [Recovered/Resolved]
  - Seasonal allergy [Unknown]
  - Anxiety [Not Recovered/Not Resolved]
  - Malaise [Not Recovered/Not Resolved]
  - Incorrect dose administered [Unknown]
  - Infected bite [Unknown]
  - Restlessness [Recovered/Resolved]
  - Nasal congestion [Unknown]
  - Migraine [Unknown]
  - Gastrointestinal disorder [Recovering/Resolving]
  - Loss of personal independence in daily activities [Not Recovered/Not Resolved]
  - Feeling jittery [Recovering/Resolving]
  - Crying [Recovering/Resolving]
  - Feeling abnormal [Not Recovered/Not Resolved]
  - Chest pain [Unknown]
  - Drug intolerance [Recovered/Resolved]
  - Stress [Unknown]
  - Dehydration [Unknown]
  - Bowel movement irregularity [Not Recovered/Not Resolved]
  - Emotional disorder [Unknown]
  - Tearfulness [Unknown]
  - Abdominal pain upper [Recovering/Resolving]
  - Energy increased [Recovering/Resolving]
  - Mood altered [Unknown]
  - Fatigue [Not Recovered/Not Resolved]
  - Extra dose administered [Unknown]
  - Insomnia [Recovering/Resolving]
  - Vertigo [Unknown]
  - Depression [Unknown]
  - Abnormal faeces [Not Recovered/Not Resolved]

NARRATIVE: CASE EVENT DATE: 20230101
